FAERS Safety Report 8146959-0 (Version None)
Quarter: 2012Q1

REPORT INFORMATION
  Report Type: 
  Country: None (occurrence: None)
  Receive Date: 20120217
  Receipt Date: 20120213
  Transmission Date: 20120608
  Serious: Yes (Life-Threatening, Hospitalization)
  Sender: FDA-Public Use
  Company Number: FR-ASTRAZENECA-2012SE07709

PATIENT
  Age: 21532 Day
  Sex: Female
  Weight: 72 kg

DRUGS (2)
  1. QUETIAPINE FUMARATE [Suspect]
     Indication: AFFECTIVE DISORDER
     Route: 048
     Dates: start: 20111223, end: 20111230
  2. QUETIAPINE FUMARATE [Suspect]
     Route: 048
     Dates: start: 20120106, end: 20120113

REACTIONS (5)
  - PNEUMONIA ASPIRATION [None]
  - ACUTE RESPIRATORY DISTRESS SYNDROME [None]
  - COMA [None]
  - MYOCLONUS [None]
  - DEPRESSED LEVEL OF CONSCIOUSNESS [None]
